FAERS Safety Report 4682716-5 (Version None)
Quarter: 2005Q2

REPORT INFORMATION
  Report Type: 
  Country: None (occurrence: None)
  Receive Date: 20050531
  Receipt Date: 20050316
  Transmission Date: 20051028
  Serious: No
  Sender: FDA-Public Use
  Company Number: 2005BI002053

PATIENT
  Age: 39 Year
  Sex: Male

DRUGS (21)
  1. AMEVIVE [Suspect]
     Indication: PSORIASIS
     Dosage: 15 MG; QW; IM
     Route: 030
     Dates: start: 20040730, end: 20041007
  2. CYCLOSPORINE [Concomitant]
  3. DOVONEX [Concomitant]
  4. BUPROPION HYDROCHLORIDE [Concomitant]
  5. COPAXONE [Concomitant]
  6. FLEXERIL [Concomitant]
  7. PREVACID [Concomitant]
  8. HYDROXYZINE HYDROCHLORIDE [Concomitant]
  9. MIRALAX [Concomitant]
  10. RISPERDAL [Concomitant]
  11. TRAMADOL HCL [Concomitant]
  12. TRAZADONE [Concomitant]
  13. VICODIN [Concomitant]
  14. VITAMIN B COMPLEX CAP [Concomitant]
  15. ZANAFLEX [Concomitant]
  16. ASPIRIN [Concomitant]
  17. ENULOSE [Concomitant]
  18. LOPROX [Concomitant]
  19. PSORIATEC CREAM [Concomitant]
  20. LOCOID [Concomitant]
  21. TAZORAC [Concomitant]

REACTIONS (1)
  - HERPES ZOSTER [None]
